FAERS Safety Report 5318661-1 (Version None)
Quarter: 2007Q2

REPORT INFORMATION
  Report Type: 
  Country: None (occurrence: None)
  Receive Date: 20070508
  Receipt Date: 20070503
  Transmission Date: 20071010
  Serious: Yes (Death)
  Sender: FDA-Public Use
  Company Number: PHRM2007FR01382

PATIENT
  Age: 78 Year
  Sex: Male
  Weight: 86 kg

DRUGS (10)
  1. GLEEVEC [Suspect]
     Indication: CHRONIC MYELOID LEUKAEMIA
     Dosage: 400 MG DAILY
     Route: 048
     Dates: start: 20070305
  2. ELISOR [Concomitant]
     Dosage: 10 MG DAILY
     Route: 048
  3. PREVISCAN [Concomitant]
     Dosage: 10 MG DAILY
     Route: 048
  4. ALDACTONE [Concomitant]
     Dosage: 25 MG DAILY
     Route: 048
  5. HEMIGOXINE NATIVELLE [Concomitant]
     Dosage: 0.25 MG DAILY
     Route: 048
  6. LASIX [Concomitant]
     Dosage: 40 MG DAILY
     Route: 048
  7. TRIATEC [Concomitant]
     Dosage: 5 MG DAILY
     Route: 048
  8. KREDEX [Concomitant]
     Dosage: 12.5 MG DAILY
     Route: 048
  9. RISPERDAL [Concomitant]
     Dosage: 1 MG DAILY
     Route: 048
  10. ALLOPURINOL [Concomitant]
     Dosage: 200 MG DAILY
     Route: 048

REACTIONS (1)
  - SUDDEN DEATH [None]
